FAERS Safety Report 8346653-7 (Version None)
Quarter: 2012Q2

REPORT INFORMATION
  Report Type: 
  Country: None (occurrence: None)
  Receive Date: 20120509
  Receipt Date: 20120508
  Transmission Date: 20120825
  Serious: Yes (Life-Threatening, Hospitalization, Other)
  Sender: FDA-Public Use
  Company Number: PHFR2012IE001438

PATIENT
  Sex: Female
  Weight: 77 kg

DRUGS (4)
  1. VALPROATE SODIUM [Concomitant]
     Dosage: 2000 MG, DAILY
     Route: 048
  2. CLOZARIL [Suspect]
     Indication: SCHIZOPHRENIA
     Dosage: 300 MG, DAILY
     Route: 048
     Dates: start: 20041008
  3. LITHIUM CARBONATE [Concomitant]
     Indication: SCHIZOAFFECTIVE DISORDER
     Dosage: 1000 MG, DAILY
     Route: 048
  4. ABILIFY [Concomitant]
     Dosage: 15 MG, DAILY

REACTIONS (6)
  - URINARY TRACT INFECTION [None]
  - DRUG LEVEL INCREASED [None]
  - ESCHERICHIA SEPSIS [None]
  - LOWER RESPIRATORY TRACT INFECTION [None]
  - RENAL FAILURE ACUTE [None]
  - HAEMOGLOBIN DECREASED [None]
